FAERS Safety Report 9202180 (Version 1)
Quarter: 2013Q2

REPORT INFORMATION
  Report Type: Spontaneous
  Country: US (occurrence: US)
  Receive Date: 20130401
  Receipt Date: 20130401
  Transmission Date: 20140414
  Serious: No
  Sender: FDA-Public Use
  Company Number: US-ASTRAZENECA-2013SE18087

PATIENT
  Age: 72 Year
  Sex: Male
  Weight: 72.6 kg

DRUGS (6)
  1. OMEPRAZOLE [Suspect]
     Indication: GASTROOESOPHAGEAL REFLUX DISEASE
     Route: 048
     Dates: start: 201205, end: 201206
  2. OMEPRAZOLE [Suspect]
     Indication: GASTROOESOPHAGEAL REFLUX DISEASE
     Route: 048
     Dates: start: 201206, end: 201209
  3. OMEPRAZOLE [Suspect]
     Indication: GASTROOESOPHAGEAL REFLUX DISEASE
     Route: 048
     Dates: start: 201209
  4. ATROVASTATIN [Concomitant]
     Indication: BLOOD CHOLESTEROL ABNORMAL
  5. AMLODIPINE [Concomitant]
     Indication: BLOOD PRESSURE ABNORMAL
  6. CIALIS [Concomitant]
     Indication: BENIGN PROSTATIC HYPERPLASIA

REACTIONS (1)
  - Blood iron decreased [Not Recovered/Not Resolved]
